FAERS Safety Report 6187148-9 (Version None)
Quarter: 2009Q2

REPORT INFORMATION
  Report Type: 
  Country: None (occurrence: None)
  Receive Date: 20090512
  Receipt Date: 20090429
  Transmission Date: 20091009
  Serious: Yes (Death, Hospitalization)
  Sender: FDA-Public Use
  Company Number: DE-AMGEN-US330452

PATIENT
  Sex: Female
  Weight: 81.5 kg

DRUGS (11)
  1. ENBREL [Suspect]
     Indication: RHEUMATOID ARTHRITIS
     Route: 058
     Dates: start: 20080812, end: 20080826
  2. FOLIC ACID [Concomitant]
  3. FLUOCORTOLONE [Concomitant]
  4. PANTOPRAZOLE SODIUM [Concomitant]
  5. ACTONEL [Concomitant]
  6. GABAPENTIN [Concomitant]
  7. ENALAPRIL MALEATE AND HYDROCHLOROTHIAZIDE [Concomitant]
     Dosage: 32.5 MG DAILY
  8. TORSEMIDE [Concomitant]
  9. IDEOS [Concomitant]
     Dosage: 2 TIMES A DAY
  10. LANTAREL [Concomitant]
     Route: 048
  11. DICLOFENAC [Concomitant]

REACTIONS (7)
  - CARDIOGENIC SHOCK [None]
  - MULTI-ORGAN FAILURE [None]
  - PNEUMOCYSTIS JIROVECI PNEUMONIA [None]
  - PNEUMONIA LEGIONELLA [None]
  - RENAL FAILURE ACUTE [None]
  - SEPSIS [None]
  - URINARY TRACT INFECTION [None]
